FAERS Safety Report 23842093 (Version 1)
Quarter: 2024Q2

REPORT INFORMATION
  Report Type: Spontaneous
  Country: US (occurrence: US)
  Receive Date: 20240510
  Receipt Date: 20240510
  Transmission Date: 20240716
  Serious: No
  Sender: FDA-Public Use
  Company Number: US-SANDOZ-SDZ2024US047371

PATIENT

DRUGS (1)
  1. HYRIMOZ [Suspect]
     Active Substance: ADALIMUMAB-ADAZ
     Indication: Product used for unknown indication
     Dosage: 0.8 ML
     Route: 065
     Dates: start: 20240509, end: 20240509

REACTIONS (8)
  - Injection site pain [Unknown]
  - Injection site discolouration [Unknown]
  - Urticaria [Unknown]
  - Oral mucosal blistering [Unknown]
  - Diarrhoea [Unknown]
  - Dry skin [Unknown]
  - Dandruff [Unknown]
  - Skin exfoliation [Unknown]
